FAERS Safety Report 6203056-9 (Version None)
Quarter: 2009Q2

REPORT INFORMATION
  Report Type: 
  Country: None (occurrence: None)
  Receive Date: 20090521
  Receipt Date: 20090521
  Transmission Date: 20091009
  Serious: No
  Sender: FDA-Public Use
  Company Number: None

PATIENT
  Age: 67 Year
  Sex: Male
  Weight: 104.3273 kg

DRUGS (1)
  1. SIMVASTATIN [Suspect]
     Indication: BLOOD CHOLESTEROL
     Dosage: ONE TABLET DAILY PO
     Route: 048
     Dates: start: 20090204, end: 20090516

REACTIONS (3)
  - DRUG INEFFECTIVE [None]
  - FOREIGN BODY IN EYE [None]
  - LID LAG [None]
